FAERS Safety Report 23750533 (Version 2)
Quarter: 2024Q2

REPORT INFORMATION
  Report Type: Spontaneous
  Country: US (occurrence: US)
  Receive Date: 20240417
  Receipt Date: 20240430
  Transmission Date: 20240716
  Serious: Yes (Hospitalization, Other)
  Sender: FDA-Public Use
  Company Number: US-MLMSERVICE-20240328-4916754-1

PATIENT
  Age: 52 Year
  Sex: Male

DRUGS (2)
  1. AMIODARONE HYDROCHLORIDE [Suspect]
     Active Substance: AMIODARONE HYDROCHLORIDE
     Indication: Hyperthyroidism
     Dosage: UNK
     Route: 042
  2. LIDOCAINE [Suspect]
     Active Substance: LIDOCAINE
     Indication: Hyperthyroidism
     Dosage: UNK
     Route: 042

REACTIONS (3)
  - Arrhythmic storm [Recovered/Resolved]
  - Hyperthyroidism [Recovering/Resolving]
  - Drug ineffective [Unknown]
